FAERS Safety Report 7523985-3 (Version None)
Quarter: 2011Q2

REPORT INFORMATION
  Report Type: 
  Country: None (occurrence: None)
  Receive Date: 20110603
  Receipt Date: 20110525
  Transmission Date: 20111010
  Serious: Yes (Other)
  Sender: FDA-Public Use
  Company Number: US-AMGEN-USASP2011027498

PATIENT
  Age: 69 Year
  Sex: Male

DRUGS (1)
  1. ENBREL [Suspect]
     Indication: PSORIASIS
     Dosage: 50 MG, QWK
     Dates: start: 20100201, end: 20110523

REACTIONS (7)
  - DIZZINESS [None]
  - HYPOTENSION [None]
  - FALL [None]
  - NEUROLOGICAL SYMPTOM [None]
  - TONSILLECTOMY [None]
  - MUSCULAR WEAKNESS [None]
  - HEART RATE IRREGULAR [None]
